FAERS Safety Report 5340562-3 (Version None)
Quarter: 2007Q2

REPORT INFORMATION
  Report Type: 
  Country: None (occurrence: None)
  Receive Date: 20070405
  Receipt Date: 20070126
  Transmission Date: 20071010
  Serious: No
  Sender: FDA-Public Use
  Company Number: US200701005505

PATIENT
  Age: 36 Year
  Sex: Female
  Weight: 185.9 kg

DRUGS (10)
  1. CYMBALTA [Suspect]
     Indication: DEPRESSION
     Dosage: SEE IMAGE
     Dates: start: 20070101, end: 20070101
  2. CYMBALTA [Suspect]
     Indication: DEPRESSION
     Dosage: SEE IMAGE
     Dates: start: 20070101, end: 20070101
  3. CYMBALTA [Suspect]
     Indication: DEPRESSION
     Dosage: SEE IMAGE
     Dates: start: 20070101, end: 20070101
  4. PAXIL [Concomitant]
  5. TRAZODONE HCL [Concomitant]
  6. SYNTHROID [Concomitant]
  7. LYRICA [Concomitant]
  8. HYDROCODONE BITARTRATE AND ACETAMINOPHEN (HYDROCODONE BITARTRATE, PARA [Concomitant]
  9. TOPAMAX [Concomitant]
  10. MITREX (SUMATRIPTAN SUCCINATE) [Concomitant]

REACTIONS (8)
  - DECREASED APPETITE [None]
  - DIZZINESS [None]
  - ENERGY INCREASED [None]
  - FEELING ABNORMAL [None]
  - HEART RATE IRREGULAR [None]
  - HYPERHIDROSIS [None]
  - INSOMNIA [None]
  - PALPITATIONS [None]
